FAERS Safety Report 7114211-8 (Version None)
Quarter: 2010Q4

REPORT INFORMATION
  Report Type: 
  Country: None (occurrence: None)
  Receive Date: 20101119
  Receipt Date: 20101113
  Transmission Date: 20110411
  Serious: Yes (Other)
  Sender: FDA-Public Use
  Company Number: US-US-EMD SERONO, INC.-7002449

PATIENT
  Sex: Female
  Weight: 78 kg

DRUGS (3)
  1. REBIF [Suspect]
     Indication: MULTIPLE SCLEROSIS
     Route: 058
     Dates: start: 20070404
  2. LAMICTAL [Concomitant]
     Indication: EPILEPSY
  3. KEPPRA XR [Concomitant]
     Indication: EPILEPSY

REACTIONS (3)
  - ARTHRITIS [None]
  - INJECTION SITE HAEMATOMA [None]
  - VISUAL ACUITY REDUCED [None]
